FAERS Safety Report 7070612-8 (Version None)
Quarter: 2010Q4

REPORT INFORMATION
  Report Type: 
  Country: None (occurrence: None)
  Receive Date: 20101029
  Receipt Date: 20101018
  Transmission Date: 20110411
  Serious: Yes (Other)
  Sender: FDA-Public Use
  Company Number: US-PFIZER INC-2010132730

PATIENT
  Sex: Female

DRUGS (2)
  1. LYRICA [Suspect]
     Dosage: UNK
  2. CELEBREX [Suspect]
     Dosage: UNK

REACTIONS (7)
  - ARTHRITIS [None]
  - BREAST CANCER FEMALE [None]
  - BURNING SENSATION [None]
  - DIABETES MELLITUS [None]
  - FIBROMYALGIA [None]
  - HYPERTENSION [None]
  - MALAISE [None]
